FAERS Safety Report 5473820-2 (Version None)
Quarter: 2007Q4

REPORT INFORMATION
  Report Type: 
  Country: None (occurrence: None)
  Receive Date: 20071001
  Receipt Date: 20070928
  Transmission Date: 20080405
  Serious: Yes (Hospitalization)
  Sender: FDA-Public Use
  Company Number: CH-MERCK-0709CHE00023

PATIENT
  Age: 71 Year
  Sex: Female
  Weight: 65 kg

DRUGS (1)
  1. NOROXIN [Suspect]
     Indication: DYSURIA
     Route: 048
     Dates: start: 20070823, end: 20070823

REACTIONS (1)
  - HEPATOCELLULAR DAMAGE [None]
